FAERS Safety Report 25322504 (Version 1)
Quarter: 2025Q2

REPORT INFORMATION
  Report Type: Report from Study
  Country: TW (occurrence: TW)
  Receive Date: 20250516
  Receipt Date: 20250516
  Transmission Date: 20250717
  Serious: Yes (Life-Threatening)
  Sender: ROCHE
  Company Number: TW-ROCHE-10000281833

PATIENT
  Age: 59 Year
  Sex: Female

DRUGS (1)
  1. HERCEPTIN [Suspect]
     Active Substance: TRASTUZUMAB
     Indication: Breast cancer
     Route: 058
     Dates: start: 20250110

REACTIONS (3)
  - Neutrophil count [Not Recovered/Not Resolved]
  - Performance status decreased [Recovered/Resolved]
  - Fatigue [Not Recovered/Not Resolved]
